FAERS Safety Report 12107278 (Version 1)
Quarter: 2016Q1

REPORT INFORMATION
  Report Type: Spontaneous
  Country: CA (occurrence: CA)
  Receive Date: 20160223
  Receipt Date: 20160223
  Transmission Date: 20160526
  Serious: Yes (Death)
  Sender: FDA-Public Use
  Company Number: CA-TEVA-637113ACC

PATIENT
  Age: 44 Year
  Sex: Female
  Weight: 41 kg

DRUGS (4)
  1. QUETIAPINE [Suspect]
     Active Substance: QUETIAPINE
     Route: 065
  2. TYLENOL WITH CODEINE [Suspect]
     Active Substance: ACETAMINOPHEN\CODEINE PHOSPHATE
     Indication: PRODUCT USED FOR UNKNOWN INDICATION
     Route: 065
  3. ZOPICLONE [Suspect]
     Active Substance: ZOPICLONE
     Route: 065
  4. COCAINE [Concomitant]
     Active Substance: COCAINE

REACTIONS (1)
  - Death [Fatal]
